FAERS Safety Report 5227580-0 (Version None)
Quarter: 2007Q1

REPORT INFORMATION
  Report Type: 
  Country: None (occurrence: None)
  Receive Date: 20070202
  Receipt Date: 20070124
  Transmission Date: 20070707
  Serious: Yes (Death)
  Sender: FDA-Public Use
  Company Number: US-JNJFOC-20061206046

PATIENT
  Sex: Male

DRUGS (3)
  1. FENTANYL [Suspect]
     Route: 062
  2. FENTANYL [Suspect]
     Indication: BACK PAIN
     Route: 062
  3. FENTANYL TRANSDERMAL SYSTEM [Suspect]
     Indication: BACK PAIN
     Route: 062

REACTIONS (2)
  - PANCREATIC CARCINOMA [None]
  - WEIGHT DECREASED [None]
